FAERS Safety Report 18424171 (Version 2)
Quarter: 2021Q3

REPORT INFORMATION
  Report Type: Spontaneous
  Country: US (occurrence: US)
  Receive Date: 20201025
  Receipt Date: 20210810
  Transmission Date: 20211014
  Serious: Yes (Hospitalization, Other)
  Sender: FDA-Public Use
  Company Number: US-PURDUE PHARMA-USA-2020-0151830

PATIENT

DRUGS (4)
  1. PERCOCET [Suspect]
     Active Substance: ACETAMINOPHEN\OXYCODONE HYDROCHLORIDE
     Indication: PRODUCT USED FOR UNKNOWN INDICATION
     Dosage: 30 MG, DAILY
     Route: 065
     Dates: start: 2008, end: 2012
  2. OXYCODONE HYDROCHLORIDE (SIMILAR TO NDA 22?272) [Suspect]
     Active Substance: OXYCODONE HYDROCHLORIDE
     Dosage: 80 MG, DAILY
     Route: 065
     Dates: start: 2008, end: 2012
  3. OXYCODONE HYDROCHLORIDE (SIMILAR TO NDA 22?272) [Suspect]
     Active Substance: OXYCODONE HYDROCHLORIDE
     Indication: PAIN
     Dosage: 10 MG, TID
     Route: 065
     Dates: start: 2007
  4. MORPHINE SULFATE (SIMILAR TO NDA 19?516) [Suspect]
     Active Substance: MORPHINE SULFATE
     Indication: PHARYNGITIS
     Dosage: UNKNOWN
     Route: 065

REACTIONS (8)
  - Pharyngitis [Unknown]
  - Drug dependence [Recovered/Resolved]
  - Drug abuse [Recovered/Resolved]
  - Depression [Unknown]
  - Injury [Unknown]
  - Anxiety [Unknown]
  - Emotional distress [Unknown]
  - Accident [Unknown]

NARRATIVE: CASE EVENT DATE: 2007
